FAERS Safety Report 15677480 (Version 3)
Quarter: 2018Q4

REPORT INFORMATION
  Report Type: Report from Study
  Country: DE (occurrence: DE)
  Receive Date: 20181130
  Receipt Date: 20181228
  Transmission Date: 20190205
  Serious: Yes (Hospitalization)
  Sender: FDA-Public Use
  Company Number: DE-SA-2017SA161343

PATIENT
  Age: 26 Year
  Sex: Female
  Weight: 52 kg

DRUGS (11)
  1. ALEMTUZUMAB [Suspect]
     Active Substance: ALEMTUZUMAB
     Indication: MULTIPLE SCLEROSIS
     Dosage: 12 MG,UNK
     Route: 041
     Dates: start: 20170816, end: 20170818
  2. ALEMTUZUMAB [Suspect]
     Active Substance: ALEMTUZUMAB
     Dosage: 12 MG,UNK
     Route: 041
     Dates: start: 20160815, end: 20160819
  3. ACICLOVIR [Concomitant]
     Active Substance: ACYCLOVIR
     Indication: ANTIVIRAL PROPHYLAXIS
     Dosage: 200 MG,BID
     Route: 048
     Dates: start: 20170815, end: 20170912
  4. URBASON [METHYLPREDNISOLONE] [Concomitant]
     Active Substance: METHYLPREDNISOLONE
     Indication: PROPHYLAXIS
     Dosage: 1000 MG,QD
     Route: 042
     Dates: start: 20170816, end: 20170819
  5. DEKRISTOL [Concomitant]
     Active Substance: CHOLECALCIFEROL
     Indication: VITAMIN D DEFICIENCY
     Dosage: 20000 IU,QW
     Route: 048
     Dates: start: 20150529
  6. RANITIC [Concomitant]
     Active Substance: RANITIDINE HYDROCHLORIDE
     Indication: PROPHYLAXIS
     Dosage: 300 MG,BID
     Route: 048
     Dates: start: 20170815, end: 20170819
  7. AERIUS [EBASTINE] [Concomitant]
     Active Substance: EBASTINE
     Indication: PROPHYLAXIS
     Dosage: 5 MG,QD
     Route: 048
     Dates: start: 20170815, end: 20170819
  8. SODIUM CHLORIDE. [Concomitant]
     Active Substance: SODIUM CHLORIDE
     Dosage: 200 ML PER HOUR
     Route: 042
     Dates: start: 20170816, end: 20170819
  9. ACICLOVIR [Concomitant]
     Active Substance: ACYCLOVIR
     Dosage: 200 MG,BID
     Route: 048
     Dates: start: 20160815, end: 20160912
  10. SODIUM CHLORIDE. [Concomitant]
     Active Substance: SODIUM CHLORIDE
     Dosage: 200 ML PER HOUR
     Route: 042
     Dates: start: 20160815, end: 20160820
  11. PARACETAMOL [Concomitant]
     Active Substance: ACETAMINOPHEN
     Indication: PROPHYLAXIS
     Dosage: 1000 MG, UNK
     Route: 042
     Dates: start: 20170816, end: 20170819

REACTIONS (2)
  - Headache [Recovered/Resolved]
  - Thrombocytopenia [Recovered/Resolved]

NARRATIVE: CASE EVENT DATE: 20170817
